FAERS Safety Report 10873688 (Version 1)
Quarter: 2015Q1

REPORT INFORMATION
  Report Type: Spontaneous
  Country: TR (occurrence: TR)
  Receive Date: 20150227
  Receipt Date: 20150227
  Transmission Date: 20150721
  Serious: Yes (Death, Other)
  Sender: FDA-Public Use
  Company Number: TR-CIPLA LTD.-2015TR01351

PATIENT

DRUGS (8)
  1. IFOSFAMIDE. [Suspect]
     Active Substance: IFOSFAMIDE
  2. CYCLOPHOSPHAMIDE. [Suspect]
     Active Substance: CYCLOPHOSPHAMIDE
     Indication: BONE SARCOMA
     Dosage: 14 COURSES OF CHEMOTHERAPY (RANGE 7 -18)
     Route: 065
  3. ADRIAMYCIN [Suspect]
     Active Substance: DOXORUBICIN HYDROCHLORIDE
     Indication: BONE SARCOMA
     Dosage: 14 COURSES OF CHEMOTHERAPY (RANGE, 7 -18)
     Route: 065
  4. IRINOTECAN [Suspect]
     Active Substance: IRINOTECAN
     Indication: BONE SARCOMA
     Dosage: 20 MG/M2/DAY FOR 2 WEEKS, FROM THE FIRST TO THE FIFTH AND THE EIGHTH TO THE TWELFTH DAYS OVER 1 HOUR
     Route: 042
  5. ETOPOSIDE. [Suspect]
     Active Substance: ETOPOSIDE
     Indication: BONE SARCOMA
     Dosage: 14 COURSES OF CHEMOTHERAPY (RANGE 7 -18)
     Route: 065
  6. TEMOZOLOMIDE. [Suspect]
     Active Substance: TEMOZOLOMIDE
     Indication: BONE SARCOMA
     Dosage: 100 MG/M2/DAY, 1 HOUR PRIOR TO IRINOTECAN FOR DAYS 1 TO 5 IN THE FIRST WEEK.
     Route: 048
  7. ACTINOMYCIN D [Suspect]
     Active Substance: DACTINOMYCIN
     Indication: BONE SARCOMA
     Dosage: 14 COURSES OF CHEMOTHERAPY (RANGE 7 -18)
     Route: 065
  8. VINCRISTINE [Suspect]
     Active Substance: VINCRISTINE
     Indication: BONE SARCOMA
     Dosage: 14 COURSES OF CHEMOTHERAPY (RANGE, 7 -18)
     Route: 065

REACTIONS (4)
  - Disease progression [Fatal]
  - Disease recurrence [Unknown]
  - Ewing^s sarcoma recurrent [None]
  - Malignant neoplasm progression [None]
